FAERS Safety Report 5957140-5 (Version None)
Quarter: 2008Q4

REPORT INFORMATION
  Report Type: 
  Country: None (occurrence: None)
  Receive Date: 20081106
  Receipt Date: 20080428
  Transmission Date: 20090506
  Serious: Yes (Other)
  Sender: FDA-Public Use
  Company Number: US200804007146

PATIENT
  Age: 56 Year
  Sex: Female

DRUGS (1)
  1. PROZAC [Suspect]

REACTIONS (2)
  - DEAFNESS [None]
  - TINNITUS [None]
